FAERS Safety Report 5129234-8 (Version None)
Quarter: 2006Q4

REPORT INFORMATION
  Report Type: 
  Country: None (occurrence: None)
  Receive Date: 20061011
  Receipt Date: 20060921
  Transmission Date: 20070319
  Serious: Yes (Hospitalization)
  Sender: FDA-Public Use
  Company Number: FR200608006796

PATIENT
  Age: 77 Year
  Sex: Female
  Weight: 45 kg

DRUGS (6)
  1. FORTEO [Suspect]
     Indication: OSTEOPOROSIS
     Dosage: 20 UG, DAILY (1/D), SUBCUTANEOUS
     Route: 058
     Dates: start: 20051215
  2. FORTEO [Concomitant]
  3. ESBERIVEN (MELILOT, RUTOSIDE) [Concomitant]
  4. JOUVENCE DE L'ABBE SOURY (CALAMUS OIL, HAMMAMELIS, PISCIDIA EXTRACT, V [Concomitant]
  5. COKENZEN 9CANDESARTAN CILEXETIL, HYDROCHLOROTHIAZIDE) TABLET [Concomitant]
  6. VENTOLIN [Concomitant]

REACTIONS (2)
  - DEEP VEIN THROMBOSIS [None]
  - PULMONARY EMBOLISM [None]
